FAERS Safety Report 8242462-8 (Version None)
Quarter: 2012Q1

REPORT INFORMATION
  Report Type: 
  Country: None (occurrence: None)
  Receive Date: 20120329
  Receipt Date: 20120319
  Transmission Date: 20120608
  Serious: Yes (Disabling, Other)
  Sender: FDA-Public Use
  Company Number: US-SANOFI-AVENTIS-2012SA014734

PATIENT
  Age: 82 Year
  Sex: Female
  Weight: 54.88 kg

DRUGS (10)
  1. CORTISONE ACETATE [Suspect]
     Indication: BACK PAIN
     Dates: start: 20091117, end: 20091117
  2. FEXOFENADINE HYDROCHLORIDE [Suspect]
  3. ANTIHYPERTENSIVES [Concomitant]
     Indication: BLOOD PRESSURE
  4. SYNTHROID [Concomitant]
  5. GABAPENTIN [Concomitant]
  6. MULTI-VITAMINS [Concomitant]
  7. ALLEGRA [Suspect]
  8. ASCORBIC ACID [Concomitant]
  9. VITAMIN E [Concomitant]
  10. CALCIUM CARBONATE [Concomitant]

REACTIONS (8)
  - BLINDNESS [None]
  - RETINAL DISORDER [None]
  - DISORIENTATION [None]
  - NERVE INJURY [None]
  - BACK PAIN [None]
  - CATARACT [None]
  - PARALYSIS [None]
  - INCORRECT DOSE ADMINISTERED [None]
